FAERS Safety Report 10368521 (Version 2)
Quarter: 2014Q3

REPORT INFORMATION
  Report Type: Spontaneous
  Country: US (occurrence: US)
  Receive Date: 20140807
  Receipt Date: 20140807
  Transmission Date: 20150326
  Serious: Yes (Death, Hospitalization)
  Sender: FDA-Public Use
  Company Number: US-ACTELION-A-NJ2014-101328

PATIENT
  Age: 64 Year
  Sex: Female

DRUGS (11)
  1. TRACLEER [Suspect]
     Active Substance: BOSENTAN\BOSENTAN MONOHYDRATE
     Indication: COR PULMONALE CHRONIC
     Dosage: UNK
     Route: 048
  2. REMODULIN [Concomitant]
     Active Substance: TREPROSTINIL
  3. SIMVASTATIN. [Concomitant]
     Active Substance: SIMVASTATIN
  4. LASIX [Concomitant]
     Active Substance: FUROSEMIDE
  5. TRACLEER [Suspect]
     Active Substance: BOSENTAN\BOSENTAN MONOHYDRATE
     Dosage: UNK
     Route: 048
  6. LEVOTHYROXINE [Concomitant]
     Active Substance: LEVOTHYROXINE
  7. DIGOXIN. [Concomitant]
     Active Substance: DIGOXIN
  8. SILDENAFIL [Concomitant]
     Active Substance: SILDENAFIL
  9. RIVAROXABAN [Concomitant]
     Active Substance: RIVAROXABAN
  10. SPIRONOLACTONE. [Concomitant]
     Active Substance: SPIRONOLACTONE
  11. URSODIOL. [Concomitant]
     Active Substance: URSODIOL

REACTIONS (5)
  - Disease progression [Fatal]
  - Oxygen saturation decreased [Fatal]
  - Blood alkaline phosphatase increased [Unknown]
  - Pulmonary arterial hypertension [Fatal]
  - Hypotension [Unknown]
